FAERS Safety Report 5409285-6 (Version None)
Quarter: 2007Q3

REPORT INFORMATION
  Report Type: 
  Country: None (occurrence: None)
  Receive Date: 20070808
  Receipt Date: 20070808
  Transmission Date: 20080115
  Serious: Yes (Other)
  Sender: FDA-Public Use
  Company Number: None

PATIENT
  Age: 77 Year
  Sex: Female
  Weight: 82.1011 kg

DRUGS (5)
  1. XOLAIR [Suspect]
     Indication: ASTHMA
     Dosage: 375 MG SQ
     Route: 058
     Dates: start: 20070329
  2. XOLAIR [Suspect]
     Indication: ASTHMA
     Dosage: 375 MG SQ
     Route: 058
     Dates: start: 20070412
  3. XOLAIR [Suspect]
     Indication: ASTHMA
     Dosage: 375 MG SQ
     Route: 058
     Dates: start: 20070510
  4. XOLAIR [Suspect]
     Indication: ASTHMA
     Dosage: 375 MG SQ
     Route: 058
     Dates: start: 20070531
  5. ZYRTEC-D [Concomitant]

REACTIONS (1)
  - RASH [None]
